FAERS Safety Report 22655994 (Version 1)
Quarter: 2023Q2

REPORT INFORMATION
  Report Type: Spontaneous
  Country: US (occurrence: US)
  Receive Date: 20230629
  Receipt Date: 20230629
  Transmission Date: 20230721
  Serious: No
  Sender: FDA-Public Use
  Company Number: US-NKFPHARMA-2022MPSPO00140

PATIENT

DRUGS (1)
  1. HEPARIN SODIUM [Suspect]
     Active Substance: HEPARIN SODIUM
     Indication: Product used for unknown indication
     Dosage: USP 10,000 USP UNITS PER 10 ML
     Route: 065

REACTIONS (1)
  - Therapeutic product effect decreased [Unknown]
